FAERS Safety Report 16877110 (Version 1)
Quarter: 2019Q4

REPORT INFORMATION
  Report Type: Spontaneous
  Country: US (occurrence: US)
  Receive Date: 20191002
  Receipt Date: 20191002
  Transmission Date: 20200122
  Serious: No
  Sender: FDA-Public Use
  Company Number: US-TEVA-2019-US-1114905

PATIENT
  Sex: Male

DRUGS (1)
  1. GRANIX [Suspect]
     Active Substance: TBO-FILGRASTIM
     Indication: COLON CANCER
     Dosage: 480 MCG DAILY ON WEDNESDAY AND THURSDAY FOR 7 WEEKS
     Route: 065
     Dates: start: 20190911

REACTIONS (1)
  - Off label use [Unknown]
